FAERS Safety Report 6626991-6 (Version None)
Quarter: 2010Q1

REPORT INFORMATION
  Report Type: 
  Country: None (occurrence: None)
  Receive Date: 20100311
  Receipt Date: 20100305
  Transmission Date: 20100710
  Serious: Yes (Death, Hospitalization, Other)
  Sender: FDA-Public Use
  Company Number: FR-CELGENEUS-056-21880-09092318

PATIENT
  Sex: Female
  Weight: 52 kg

DRUGS (13)
  1. REVLIMID [Suspect]
     Route: 048
     Dates: start: 20100106, end: 20100106
  2. REVLIMID [Suspect]
     Route: 048
     Dates: start: 20090805, end: 20100106
  3. REVLIMID [Suspect]
     Route: 048
     Dates: start: 20090728, end: 20090731
  4. KARDEGIC [Concomitant]
     Indication: THROMBOSIS PROPHYLAXIS
     Route: 048
     Dates: start: 20030103
  5. KREDEX [Concomitant]
     Route: 048
     Dates: start: 20030103
  6. ODRIK [Concomitant]
     Route: 048
     Dates: start: 20061105
  7. IXIL [Concomitant]
     Indication: DEPRESSION
     Route: 048
     Dates: start: 20061105
  8. PRAVASTATIN [Concomitant]
     Route: 048
     Dates: start: 20030103
  9. LASILIX [Concomitant]
     Route: 048
     Dates: start: 20030103
  10. PREDNISONE [Concomitant]
     Route: 048
     Dates: start: 20090805, end: 20090813
  11. ASPIRIN [Concomitant]
     Indication: MYOCARDIAL INFARCTION
     Route: 065
  12. ASPIRIN [Concomitant]
     Indication: THROMBOSIS PROPHYLAXIS
  13. EPOGEN [Concomitant]
     Indication: DRUG USE FOR UNKNOWN INDICATION
     Route: 065

REACTIONS (4)
  - BRONCHITIS [None]
  - GENERAL PHYSICAL HEALTH DETERIORATION [None]
  - LUNG INFECTION [None]
  - THROMBOSIS [None]
